FAERS Safety Report 15278814 (Version 1)
Quarter: 2018Q3

REPORT INFORMATION
  Report Type: Spontaneous
  Country: TR (occurrence: TR)
  Receive Date: 20180815
  Receipt Date: 20180815
  Transmission Date: 20181010
  Serious: Yes (Other)
  Sender: FDA-Public Use
  Company Number: TR-TEVA-2018-TR-942300

PATIENT
  Age: 47 Year
  Sex: Male

DRUGS (2)
  1. AMOXICILLIN. [Suspect]
     Active Substance: AMOXICILLIN
     Indication: UPPER RESPIRATORY TRACT INFECTION
     Route: 048
  2. MOXIFLOXACIN. [Suspect]
     Active Substance: MOXIFLOXACIN
     Indication: UPPER RESPIRATORY TRACT INFECTION
     Route: 048

REACTIONS (5)
  - Cystoid macular oedema [Recovered/Resolved]
  - Iris transillumination defect [Recovered/Resolved]
  - Cataract subcapsular [Recovered/Resolved]
  - Dysmetropsia [Recovered/Resolved]
  - Metamorphopsia [Recovered/Resolved]
